FAERS Safety Report 17175000 (Version 1)
Quarter: 2019Q4

REPORT INFORMATION
  Report Type: Spontaneous
  Country: US (occurrence: US)
  Receive Date: 20191126
  Receipt Date: 20191126
  Transmission Date: 20200122
  Serious: Yes (Hospitalization)
  Sender: FDA-Public Use
  Company Number: None

PATIENT
  Age: 73 Year
  Sex: Male

DRUGS (3)
  1. AMOXICILLIN. [Concomitant]
     Active Substance: AMOXICILLIN
  2. CYCLOSPORINE 100 MG [Suspect]
     Active Substance: CYCLOSPORINE
     Indication: HEART TRANSPLANT
     Route: 048
     Dates: start: 20160806, end: 20191126
  3. CYCLOSPORINE. [Suspect]
     Active Substance: CYCLOSPORINE

REACTIONS (1)
  - Infection [None]
